FAERS Safety Report 7088466-2 (Version None)
Quarter: 2010Q4

REPORT INFORMATION
  Report Type: 
  Country: None (occurrence: None)
  Receive Date: 20101108
  Receipt Date: 20101102
  Transmission Date: 20110411
  Serious: Yes (Congenital Anomaly, Other)
  Sender: FDA-Public Use
  Company Number: US-PFIZER INC-2010092587

PATIENT
  Sex: Female
  Weight: 4 kg

DRUGS (3)
  1. ZOLOFT [Suspect]
     Dosage: 50 MG, DAILY
     Route: 064
     Dates: start: 20020101
  2. ZOLOFT [Suspect]
     Dosage: 100 MG, DAILY
     Dates: end: 20070801
  3. ZOLOFT [Suspect]
     Dosage: 50 MG, DAILY
     Dates: start: 20070801, end: 20100114

REACTIONS (7)
  - ATRIAL SEPTAL DEFECT [None]
  - CARDIAC FAILURE CONGESTIVE [None]
  - CARDIOMEGALY [None]
  - DRUG EXPOSURE DURING PREGNANCY [None]
  - HEART DISEASE CONGENITAL [None]
  - HYPOXIA [None]
  - PATENT DUCTUS ARTERIOSUS [None]
